FAERS Safety Report 22360642 (Version 1)
Quarter: 2023Q2

REPORT INFORMATION
  Report Type: Spontaneous
  Country: US (occurrence: US)
  Receive Date: 20230524
  Receipt Date: 20230524
  Transmission Date: 20230722
  Serious: Yes (Other)
  Sender: FDA-Public Use
  Company Number: US-drreddys-LIT/USA/23/0165574

PATIENT
  Sex: Male

DRUGS (2)
  1. TACROLIMUS [Interacting]
     Active Substance: TACROLIMUS
     Indication: Immunosuppression
  2. VORICONAZOLE [Interacting]
     Active Substance: VORICONAZOLE
     Indication: Histoplasmosis

REACTIONS (3)
  - Hyperkalaemia [Unknown]
  - Blood creatinine increased [Unknown]
  - Drug interaction [Unknown]
